FAERS Safety Report 9443398 (Version 3)
Quarter: 2013Q3

REPORT INFORMATION
  Report Type: Spontaneous
  Country: JP (occurrence: JP)
  Receive Date: 20130806
  Receipt Date: 20130906
  Transmission Date: 20140515
  Serious: Yes (Other)
  Sender: FDA-Public Use
  Company Number: PHHY2013JP083434

PATIENT
  Age: 71 Year
  Sex: Female
  Weight: 61 kg

DRUGS (2)
  1. FAMVIR [Suspect]
     Indication: HERPES ZOSTER
     Dosage: 500 MG, QD
     Route: 048
     Dates: start: 20130726, end: 20130726
  2. METHYCOBAL [Suspect]
     Indication: NEUROSIS
     Dosage: 500 UG, TID
     Route: 048
     Dates: start: 20130726, end: 20130726

REACTIONS (9)
  - Vasculitis [Recovered/Resolved]
  - Livedo reticularis [Recovered/Resolved]
  - Pain [Unknown]
  - Rash [Unknown]
  - Pigmentation disorder [Recovering/Resolving]
  - Urticaria [Recovered/Resolved]
  - Erythema [Unknown]
  - Swelling [Unknown]
  - Paraesthesia [Unknown]
